FAERS Safety Report 16627613 (Version 1)
Quarter: 2019Q3

REPORT INFORMATION
  Report Type: Spontaneous
  Country: IT (occurrence: IT)
  Receive Date: 20190724
  Receipt Date: 20190724
  Transmission Date: 20191004
  Serious: Yes (Other)
  Sender: FDA-Public Use
  Company Number: IT-MYLANLABS-2019M1068741

PATIENT
  Age: 60 Year
  Sex: Female

DRUGS (2)
  1. CEFTRIAXONE MYLAN GENERICS [Suspect]
     Active Substance: CEFTRIAXONE
     Indication: BRONCHITIS
     Dosage: 1 DOSAGE FORM, TOTAL ((1 VIAL OF 1 G, BATCH NUMBER 4B1808 + 1 VIAL OF 3.5 ML SOLVENT)
     Route: 030
     Dates: start: 20190717, end: 20190717
  2. CLARITROMICINA MYLAN GENERICS 500 MG COMPRESSE RIVESTITE CON FILM [Suspect]
     Active Substance: CLARITHROMYCIN
     Indication: PRODUCT USED FOR UNKNOWN INDICATION
     Dosage: 1 DOSAGE FORM
     Route: 048
     Dates: end: 20190717

REACTIONS (6)
  - Loss of consciousness [Recovered/Resolved]
  - Hyperhidrosis [Recovered/Resolved]
  - Ear discomfort [Recovered/Resolved]
  - Pain in extremity [Recovered/Resolved]
  - Vision blurred [Not Recovered/Not Resolved]
  - Confusional state [Not Recovered/Not Resolved]

NARRATIVE: CASE EVENT DATE: 20190717
